FAERS Safety Report 15117821 (Version 4)
Quarter: 2018Q3

REPORT INFORMATION
  Report Type: Spontaneous
  Country: US (occurrence: US)
  Receive Date: 20180706
  Receipt Date: 20180926
  Transmission Date: 20181010
  Serious: No
  Sender: FDA-Public Use
  Company Number: US-ACTELION-A-NJ2018-174478

PATIENT
  Age: 54 Year
  Sex: Female

DRUGS (6)
  1. AMBRISENTAN [Suspect]
     Active Substance: AMBRISENTAN
     Indication: PULMONARY HYPERTENSION
     Dosage: 5 MG, QD
     Route: 065
     Dates: start: 20161216
  2. ADEMPAS [Suspect]
     Active Substance: RIOCIGUAT
     Indication: PULMONARY HYPERTENSION
     Dosage: 1.5 MG, TID
     Route: 065
     Dates: start: 20170322
  3. VELETRI [Suspect]
     Active Substance: EPOPROSTENOL
     Indication: PULMONARY HYPERTENSION
     Dosage: 1.5 MG, UNK
     Route: 042
  4. VELETRI [Suspect]
     Active Substance: EPOPROSTENOL
     Dosage: 33.5 UNK, UNK
     Route: 042
     Dates: start: 20170126
  5. ADEMPAS [Suspect]
     Active Substance: RIOCIGUAT
     Dosage: 2 MG, TID
     Route: 065
  6. VELETRI [Suspect]
     Active Substance: EPOPROSTENOL
     Dosage: 32.75 UNK, UNK
     Route: 042

REACTIONS (7)
  - Pain in jaw [Unknown]
  - Palpitations [Recovered/Resolved]
  - Blood pressure decreased [Recovered/Resolved]
  - Flushing [Unknown]
  - Weight increased [Unknown]
  - Diarrhoea [Unknown]
  - Constipation [Unknown]

NARRATIVE: CASE EVENT DATE: 20180616
